FAERS Safety Report 7483677-6 (Version None)
Quarter: 2011Q2

REPORT INFORMATION
  Report Type: 
  Country: None (occurrence: None)
  Receive Date: 20110509
  Receipt Date: 20110426
  Transmission Date: 20111010
  Serious: Yes (Hospitalization)
  Sender: FDA-Public Use
  Company Number: 1000020642

PATIENT
  Age: 41 Year
  Sex: Female

DRUGS (3)
  1. CITALOPRAM HYDROBROMIDE [Suspect]
     Indication: DEPRESSION
     Dosage: 20 MG (20 MG, 1IN 1D)
     Dates: start: 20100801, end: 20101129
  2. CITALOPRAM HYDROBROMIDE [Suspect]
     Indication: DEPRESSION
     Dosage: 40 MG (40 MG, 1 IN 1 D)
     Dates: start: 20101130, end: 20101207
  3. ABILIFY [Suspect]
     Dates: start: 20101130, end: 20101207

REACTIONS (4)
  - VASCULITIS CEREBRAL [None]
  - CEREBRAL ISCHAEMIA [None]
  - ABDOMINAL PAIN [None]
  - POSTERIOR REVERSIBLE ENCEPHALOPATHY SYNDROME [None]
